FAERS Safety Report 14657469 (Version 2)
Quarter: 2019Q1

REPORT INFORMATION
  Report Type: Spontaneous
  Country: US (occurrence: US)
  Receive Date: 20180320
  Receipt Date: 20190117
  Transmission Date: 20190417
  Serious: Yes (Other)
  Sender: FDA-Public Use
  Company Number: US-BEH-2018088832

PATIENT
  Sex: Female
  Weight: 72.56 kg

DRUGS (28)
  1. NORCO [Concomitant]
     Active Substance: ACETAMINOPHEN\HYDROCODONE BITARTRATE
  2. HEPARIN [Concomitant]
     Active Substance: HEPARIN SODIUM
  3. MAGNESIUM [Concomitant]
     Active Substance: MAGNESIUM
  4. TYLENOL [Concomitant]
     Active Substance: ACETAMINOPHEN
  5. CYCLOBENZAPRINE. [Concomitant]
     Active Substance: CYCLOBENZAPRINE
  6. EPINEPHRINE. [Concomitant]
     Active Substance: EPINEPHRINE
  7. SUMATRIPTAN. [Concomitant]
     Active Substance: SUMATRIPTAN
  8. BERINERT [Suspect]
     Active Substance: HUMAN C1-ESTERASE INHIBITOR
     Indication: HEREDITARY ANGIOEDEMA
     Dosage: 2000 IU, UNK
     Route: 042
     Dates: start: 20170322
  9. XOLAIR [Concomitant]
     Active Substance: OMALIZUMAB
  10. BENADRYL [Concomitant]
     Active Substance: DIPHENHYDRAMINE HYDROCHLORIDE
  11. ZYRTEC [Concomitant]
     Active Substance: CETIRIZINE HYDROCHLORIDE
  12. VALTREX [Concomitant]
     Active Substance: VALACYCLOVIR HYDROCHLORIDE
  13. KALBITOR [Concomitant]
     Active Substance: ECALLANTIDE
  14. DIPHENHYDRAMINE. [Concomitant]
     Active Substance: DIPHENHYDRAMINE
  15. AZITHROMYCIN ANHYDROUS. [Concomitant]
     Active Substance: AZITHROMYCIN ANHYDROUS
  16. PEPCID                             /00305201/ [Concomitant]
     Active Substance: ALUMINUM HYDROXIDE\MAGNESIUM CARBONATE
  17. SODIUM CHLORIDE. [Concomitant]
     Active Substance: SODIUM CHLORIDE
  18. TRAMADOL. [Concomitant]
     Active Substance: TRAMADOL
  19. BENTYL [Concomitant]
     Active Substance: DICYCLOMINE HYDROCHLORIDE
  20. AFRIN [Concomitant]
     Active Substance: OXYMETAZOLINE
  21. SINGULAIR [Concomitant]
     Active Substance: MONTELUKAST SODIUM
  22. VITAMIN D3 [Concomitant]
     Active Substance: CHOLECALCIFEROL
  23. RIZATRIPTAN. [Concomitant]
     Active Substance: RIZATRIPTAN
  24. POTASSIUM [Concomitant]
     Active Substance: POTASSIUM
  25. RANITIDINE. [Concomitant]
     Active Substance: RANITIDINE
  26. BERINERT [Suspect]
     Active Substance: HUMAN C1-ESTERASE INHIBITOR
     Dosage: UNK
     Route: 042
  27. STERILE WATER [Concomitant]
     Active Substance: WATER
  28. FIRAZYR [Concomitant]
     Active Substance: ICATIBANT ACETATE

REACTIONS (2)
  - Hereditary angioedema [Unknown]
  - Contusion [Unknown]
